FAERS Safety Report 7918165-3 (Version None)
Quarter: 2011Q4

REPORT INFORMATION
  Report Type: 
  Country: None (occurrence: None)
  Receive Date: 20111116
  Receipt Date: 20111108
  Transmission Date: 20120403
  Serious: Yes (Hospitalization)
  Sender: FDA-Public Use
  Company Number: US-ACTELION-A-NJ2011-56431

PATIENT

DRUGS (3)
  1. TRACLEER [Suspect]
     Indication: PULMONARY ARTERIAL HYPERTENSION
     Dosage: UNK
     Route: 048
     Dates: start: 20100219
  2. REVATIO [Concomitant]
  3. TOBI [Concomitant]

REACTIONS (4)
  - CELLULITIS [None]
  - DRUG DOSE OMISSION [None]
  - LIMB DISCOMFORT [None]
  - DYSPNOEA [None]
